FAERS Safety Report 9202713 (Version 2)
Quarter: 2013Q4

REPORT INFORMATION
  Report Type: Spontaneous
  Country: US (occurrence: US)
  Receive Date: 20130401
  Receipt Date: 20131218
  Transmission Date: 20140711
  Serious: Yes (Other)
  Sender: FDA-Public Use
  Company Number: US-BAYER-2013-039219

PATIENT
  Age: 23 Year
  Sex: Female

DRUGS (3)
  1. YASMIN [Suspect]
  2. YAZ [Suspect]
  3. FLUTICASONE [Concomitant]
     Dosage: 50 MCG, INHALED
     Dates: start: 20081125

REACTIONS (7)
  - Gallbladder injury [None]
  - Pulmonary embolism [None]
  - Thrombosis [None]
  - Cholecystitis chronic [None]
  - Injury [None]
  - Pain [None]
  - Emotional distress [None]
